FAERS Safety Report 15740284 (Version 1)
Quarter: 2018Q4

REPORT INFORMATION
  Report Type: Spontaneous
  Country: EG (occurrence: EG)
  Receive Date: 20181219
  Receipt Date: 20181219
  Transmission Date: 20190205
  Serious: Yes (Other)
  Sender: FDA-Public Use
  Company Number: EG-MYLANLABS-2018M1091542

PATIENT
  Age: 14 Year
  Sex: Female
  Weight: 65 kg

DRUGS (3)
  1. BUDESONIDE W/FORMOTEROL [Suspect]
     Active Substance: BUDESONIDE\FORMOTEROL
     Indication: ASTHMA
     Dosage: EXCHANGEABLE WITH SALMETEROL/FLUTICASONE-PROPIONATE; ONCE OR TWICE PER DAY
     Route: 055
  2. SALBUTAMOL [Suspect]
     Active Substance: ALBUTEROL
     Indication: ASTHMA
     Dosage: ONE PUFF AS NEEDED WHEN HER SYMPTOMS WORSEN BRONCHOSPASM.
     Route: 055
  3. SALMETEROL/FLUTICASONE CASCAN [Suspect]
     Active Substance: FLUTICASONE PROPIONATE\SALMETEROL XINAFOATE
     Indication: ASTHMA
     Dosage: EXCHANGEABLE WITH BUDESONIDE/FORMOTEROL; ONCE OR TWICE PER DAY
     Route: 055

REACTIONS (1)
  - Mitral valve prolapse [Unknown]
